FAERS Safety Report 10785199 (Version 1)
Quarter: 2015Q1

REPORT INFORMATION
  Report Type: Other
  Country: IT (occurrence: IT)
  Receive Date: 20150211
  Receipt Date: 20150211
  Transmission Date: 20150721
  Serious: Yes (Other)
  Sender: FDA-Public Use
  Company Number: IT-SUN PHARMACEUTICAL INDUSTRIES LTD-2015SUN00272

PATIENT

DRUGS (8)
  1. AVASTIN [Suspect]
     Active Substance: BEVACIZUMAB
     Indication: RECTAL CANCER METASTATIC
     Dosage: 350 MG CYCLICAL
     Route: 042
     Dates: start: 20140626, end: 20141211
  2. 1-(?-D-5^-DEOSSIRIBOFURANOSIL)-5-FLUOROURACILE [Suspect]
     Active Substance: FLUOROURACIL
     Indication: RECTAL CANCER METASTATIC
     Dosage: 700 MG CYCLICAL
     Route: 040
     Dates: start: 20140626, end: 20141211
  3. CARDURA [Concomitant]
     Active Substance: DOXAZOSIN MESYLATE
  4. CARDICOR [Concomitant]
     Active Substance: BISOPROLOL
  5. SIVASTIN [Concomitant]
     Active Substance: SIMVASTATIN
  6. LEVOFOLINIC ACID [Concomitant]
     Active Substance: LEVOLEUCOVORIN
     Dosage: 350 MILLIGRAMMI
     Route: 042
     Dates: start: 20140626, end: 20141211
  7. OXALIPLATIN. [Suspect]
     Active Substance: OXALIPLATIN
     Indication: RECTAL CANCER METASTATIC
     Dosage: 75 MG CYCLICAL
     Route: 042
     Dates: start: 20140626, end: 20141211
  8. 1-(?-D-5^-DEOSSIRIBOFURANOSIL)-5-FLUOROURACILE [Suspect]
     Active Substance: FLUOROURACIL
     Dosage: 4220 MG CYCLICAL
     Route: 041
     Dates: start: 20140626, end: 20141211

REACTIONS (3)
  - Paraesthesia [Recovering/Resolving]
  - Hypertensive crisis [Recovering/Resolving]
  - Gastrointestinal motility disorder [Recovering/Resolving]

NARRATIVE: CASE EVENT DATE: 20140829
